FAERS Safety Report 9605149 (Version 2)
Quarter: 2013Q4

REPORT INFORMATION
  Report Type: Spontaneous
  Country: CA (occurrence: CA)
  Receive Date: 20131008
  Receipt Date: 20131016
  Transmission Date: 20140711
  Serious: Yes (Hospitalization, Disabling, Other)
  Sender: FDA-Public Use
  Company Number: CA-BAXTER-2013BAX038181

PATIENT
  Age: 56 Year
  Sex: Male

DRUGS (3)
  1. DIANEAL PD4 SOLUTION WITH 1.5% DEXTROSE AND 2.5 MEQ/L CALCIUM [Suspect]
     Indication: PERITONEAL DIALYSIS
     Route: 033
     Dates: start: 2011
  2. DIANEAL PD4 SOLUTION WITH 2.5% DEXTROSE AND 2.5 MEQ/L CALCIUM [Suspect]
     Indication: PERITONEAL DIALYSIS
     Dosage: 2 BAGS
     Route: 033
     Dates: start: 2011, end: 201309
  3. DIANEAL PD4 SOLUTION WITH 2.5% DEXTROSE AND 2.5 MEQ/L CALCIUM [Suspect]
     Dosage: 2 BAGS
     Route: 033
     Dates: start: 201309

REACTIONS (9)
  - Blindness [Unknown]
  - Acrochordon [Recovered/Resolved]
  - Skin infection [Recovered/Resolved]
  - Unevaluable event [Recovered/Resolved]
  - Cardiac discomfort [Recovered/Resolved]
  - Gastrointestinal disorder [Recovered/Resolved]
  - Blood glucose increased [Recovered/Resolved]
  - Hypophagia [Unknown]
  - Asthenia [Not Recovered/Not Resolved]
